FAERS Safety Report 15313704 (Version 1)
Quarter: 2018Q3

REPORT INFORMATION
  Report Type: Spontaneous
  Country: US (occurrence: US)
  Receive Date: 20180824
  Receipt Date: 20180824
  Transmission Date: 20181010
  Serious: No
  Sender: FDA-Public Use
  Company Number: PHEH2018US034410

PATIENT
  Age: 76 Year
  Sex: Female

DRUGS (1)
  1. AMOXICILLIN AND CLAVULANATE [Suspect]
     Active Substance: AMOXICILLIN\CLAVULANIC ACID
     Indication: PRODUCT USED FOR UNKNOWN INDICATION
     Dosage: 1 DF, BID
     Route: 065
     Dates: start: 20180813, end: 20180815

REACTIONS (3)
  - Vomiting [Unknown]
  - Nausea [Unknown]
  - Dehydration [Unknown]

NARRATIVE: CASE EVENT DATE: 20180813
